FAERS Safety Report 5672931-6 (Version None)
Quarter: 2008Q1

REPORT INFORMATION
  Report Type: 
  Country: None (occurrence: None)
  Receive Date: 20080319
  Receipt Date: 20071207
  Transmission Date: 20080703
  Serious: No
  Sender: FDA-Public Use
  Company Number: US-ASTRAZENECA-2007UW27939

PATIENT
  Age: 71 Year
  Sex: Female
  Weight: 68 kg

DRUGS (11)
  1. SYMBICORT [Suspect]
     Indication: DYSPNOEA
     Dosage: 160/4.5 UG 2 PUFFS BID
     Route: 055
  2. SYMBICORT [Suspect]
     Indication: PNEUMONIA
     Dosage: 160/4.5 UG 2 PUFFS BID
     Route: 055
  3. COMBIVENT [Concomitant]
  4. LISINOPRIL [Concomitant]
  5. VALIUM [Concomitant]
  6. ASPIRIN [Concomitant]
  7. VITAMIN D [Concomitant]
  8. LASIX [Concomitant]
  9. ALBUTEROL [Concomitant]
  10. IPRATROPIUM BROMIDE [Concomitant]
  11. SPIRIVA [Concomitant]

REACTIONS (3)
  - DYSPHONIA [None]
  - PARAESTHESIA [None]
  - TREMOR [None]
